FAERS Safety Report 23288146 (Version 2)
Quarter: 2024Q1

REPORT INFORMATION
  Report Type: Spontaneous
  Country: US (occurrence: US)
  Receive Date: 20231212
  Receipt Date: 20240306
  Transmission Date: 20240410
  Serious: Yes (Death, Other)
  Sender: FDA-Public Use
  Company Number: US-PFIZER INC-PV202300201349

PATIENT
  Age: 64 Year
  Sex: Male

DRUGS (1)
  1. BOSULIF [Suspect]
     Active Substance: BOSUTINIB MONOHYDRATE
     Dosage: 400 MG

REACTIONS (7)
  - Sepsis [Fatal]
  - Clostridium difficile colitis [Fatal]
  - Pneumonia [Fatal]
  - Urinary tract infection [Fatal]
  - Catheter placement [Unknown]
  - Illness [Unknown]
  - Asthenia [Unknown]
